FAERS Safety Report 18395835 (Version 2)
Quarter: 2020Q4

REPORT INFORMATION
  Report Type: Spontaneous
  Country: US (occurrence: US)
  Receive Date: 20201018
  Receipt Date: 20201028
  Transmission Date: 20210114
  Serious: Yes (Death, Other)
  Sender: FDA-Public Use
  Company Number: US-GILEAD-2020-0499431

PATIENT
  Age: 64 Year
  Sex: Female

DRUGS (33)
  1. CHLORHEXIDINE [Concomitant]
     Active Substance: CHLORHEXIDINE
  2. HYDRALAZINE [Concomitant]
     Active Substance: HYDRALAZINE HYDROCHLORIDE
  3. LEVOTHYROXINE. [Concomitant]
     Active Substance: LEVOTHYROXINE
  4. TRAMADOL. [Concomitant]
     Active Substance: TRAMADOL
  5. REMDESIVIR. [Suspect]
     Active Substance: REMDESIVIR
     Dosage: 100 MG, QD
     Route: 042
     Dates: start: 20200907, end: 20200910
  6. ACETAMINOPHEN. [Concomitant]
     Active Substance: ACETAMINOPHEN
  7. FAMOTIDINE. [Concomitant]
     Active Substance: FAMOTIDINE
  8. NOREPINEPHRINE. [Concomitant]
     Active Substance: NOREPINEPHRINE
  9. VECURONIUM [Concomitant]
     Active Substance: VECURONIUM BROMIDE
  10. INSULIN ASPART [Concomitant]
     Active Substance: INSULIN ASPART
  11. REMDESIVIR. [Suspect]
     Active Substance: REMDESIVIR
     Indication: COVID-19 PNEUMONIA
     Dosage: 200 MG, ONCE
     Route: 042
     Dates: start: 20200906, end: 20200906
  12. ENALAPRIL [Concomitant]
     Active Substance: ENALAPRIL
  13. DEXMEDETOMIDINE. [Concomitant]
     Active Substance: DEXMEDETOMIDINE
  14. FENTANYL. [Concomitant]
     Active Substance: FENTANYL
  15. MELATONIN [Concomitant]
     Active Substance: MELATONIN
  16. MUPIROCIN. [Concomitant]
     Active Substance: MUPIROCIN
  17. ONDANSETRON [Concomitant]
     Active Substance: ONDANSETRON
  18. TAMSULOSIN [Concomitant]
     Active Substance: TAMSULOSIN
  19. ENOXAPARIN [Concomitant]
     Active Substance: ENOXAPARIN
  20. FUROSEMIDE. [Concomitant]
     Active Substance: FUROSEMIDE
  21. HYDROCODONE-ACETAMINOPHEN [Concomitant]
     Active Substance: ACETAMINOPHEN\HYDROCODONE
  22. PIPERACILLIN AND TAZOBACTAM [Concomitant]
     Active Substance: PIPERACILLIN SODIUM\TAZOBACTAM SODIUM
  23. DEXAMETHASONE. [Concomitant]
     Active Substance: DEXAMETHASONE
  24. BENZONATATE. [Concomitant]
     Active Substance: BENZONATATE
  25. CEFTRIAXONE. [Concomitant]
     Active Substance: CEFTRIAXONE
  26. DULOXETINE. [Concomitant]
     Active Substance: DULOXETINE
  27. ALBUTEROL. [Concomitant]
     Active Substance: ALBUTEROL
  28. ALPRAZOLAM. [Concomitant]
     Active Substance: ALPRAZOLAM
  29. AZITHROMYCIN ANHYDROUS. [Concomitant]
     Active Substance: AZITHROMYCIN ANHYDROUS
  30. GABAPENTIN. [Concomitant]
     Active Substance: GABAPENTIN
  31. GUAIFENESIN. [Concomitant]
     Active Substance: GUAIFENESIN
  32. IPRATROPIUM [Concomitant]
     Active Substance: IPRATROPIUM
  33. PROPOFOL. [Concomitant]
     Active Substance: PROPOFOL

REACTIONS (2)
  - Shock [Unknown]
  - Death [Fatal]

NARRATIVE: CASE EVENT DATE: 202009
